FAERS Safety Report 25996594 (Version 1)
Quarter: 2025Q4

REPORT INFORMATION
  Report Type: Spontaneous
  Country: US (occurrence: US)
  Receive Date: 20251104
  Receipt Date: 20251104
  Transmission Date: 20260118
  Serious: No
  Sender: MERCK SHARP & DOHME LLC
  Company Number: US-009507513-2338086

PATIENT
  Age: 64 Year
  Sex: Female

DRUGS (3)
  1. ERTAPENEM [Suspect]
     Active Substance: ERTAPENEM
     Indication: Escherichia infection
  2. POSACONAZOLE [Concomitant]
     Active Substance: POSACONAZOLE
     Indication: Prophylaxis
  3. DEXAMETHASONE [Concomitant]
     Active Substance: DEXAMETHASONE
     Indication: Autoimmune haemolytic anaemia

REACTIONS (1)
  - Pathogen resistance [Unknown]
